FAERS Safety Report 18681715 (Version 2)
Quarter: 2023Q1

REPORT INFORMATION
  Report Type: Report from Study
  Country: CL (occurrence: CL)
  Receive Date: 20201230
  Receipt Date: 20230225
  Transmission Date: 20230417
  Serious: Yes (Other)
  Sender: FDA-Public Use
  Company Number: CL-NOVARTISPH-NVSC2020CL342561

PATIENT
  Age: 66 Year
  Sex: Female

DRUGS (2)
  1. COSENTYX [Suspect]
     Active Substance: SECUKINUMAB
     Indication: Psoriatic arthropathy
     Dosage: 300 MG, QW
     Route: 058
     Dates: start: 20201203
  2. COSENTYX [Suspect]
     Active Substance: SECUKINUMAB
     Dosage: 300 MG, QMO
     Route: 058
     Dates: start: 20201203, end: 20230129

REACTIONS (8)
  - Upper limb fracture [Recovering/Resolving]
  - Pain in extremity [Recovering/Resolving]
  - Neck pain [Recovering/Resolving]
  - Skin plaque [Unknown]
  - Hand deformity [Unknown]
  - Finger deformity [Unknown]
  - Pain [Unknown]
  - Drug ineffective [Unknown]
